FAERS Safety Report 5564392-2 (Version None)
Quarter: 2007Q4

REPORT INFORMATION
  Report Type: 
  Country: None (occurrence: None)
  Receive Date: 20071218
  Receipt Date: 20071211
  Transmission Date: 20080405
  Serious: Yes (Hospitalization)
  Sender: FDA-Public Use
  Company Number: US-BRISTOL-MYERS SQUIBB COMPANY-14011225

PATIENT
  Age: 79 Year
  Sex: Male
  Weight: 81 kg

DRUGS (2)
  1. CISPLATIN [Suspect]
     Indication: SQUAMOUS CELL CARCINOMA
     Dosage: COURSE START DATE-05NOV07
     Dates: start: 20071105
  2. RADIATION THERAPY [Suspect]
     Indication: SQUAMOUS CELL CARCINOMA
     Dosage: 1 DOSAGEFORM = 44GY;FRACTIONS-35;ELAPSED DAYS-29
     Dates: start: 20071105, end: 20071204

REACTIONS (4)
  - DEHYDRATION [None]
  - DYSPHAGIA [None]
  - PNEUMONITIS [None]
  - STOMATITIS [None]
